FAERS Safety Report 9336450 (Version 2)
Quarter: 2013Q2

REPORT INFORMATION
  Report Type: Spontaneous
  Country: GB (occurrence: GB)
  Receive Date: 20130607
  Receipt Date: 20130621
  Transmission Date: 20140414
  Serious: Yes (Hospitalization)
  Sender: FDA-Public Use
  Company Number: GB-BANPHARM-20131376

PATIENT
  Age: 68 Year
  Sex: Male
  Weight: 73 kg

DRUGS (6)
  1. IBUPROFEN UNKNOWN PRODUCT [Suspect]
     Indication: SCIATICA
     Dosage: 200 MG, TID,
     Route: 048
     Dates: start: 20130404, end: 20130423
  2. IBUPROFEN UNKNOWN PRODUCT [Suspect]
     Indication: SCIATICA
     Dosage: 400 MG, TID,
     Route: 048
     Dates: start: 20130424, end: 20130425
  3. AMLODIPINE [Concomitant]
     Indication: HYPERTENSION
     Dosage: 5 MG, QD,
     Route: 048
  4. BENDROFLUMETHIAZIDE [Concomitant]
     Indication: HYPERTENSION
     Dosage: 2.5 MG, QD,
     Route: 048
  5. CO-DYDRAMOL [Concomitant]
     Indication: ANALGESIC THERAPY
     Route: 048
  6. MESALAZINE [Concomitant]
     Indication: COLITIS ULCERATIVE
     Dosage: 2400 MG, QD,
     Route: 048

REACTIONS (6)
  - Gastrointestinal haemorrhage [Recovering/Resolving]
  - Melaena [Recovering/Resolving]
  - Haematemesis [Recovering/Resolving]
  - Diarrhoea [Recovering/Resolving]
  - Nausea [Recovering/Resolving]
  - Vomiting [Recovering/Resolving]
